FAERS Safety Report 9406612 (Version 3)
Quarter: 2013Q3

REPORT INFORMATION
  Report Type: Spontaneous
  Country: DE (occurrence: DE)
  Receive Date: 20130718
  Receipt Date: 20130918
  Transmission Date: 20140515
  Serious: Yes (Other)
  Sender: FDA-Public Use
  Company Number: DE-UCBSA-092214

PATIENT
  Sex: Female

DRUGS (4)
  1. KEPPRA [Suspect]
     Dosage: STRENGTH:1000 MG
  2. LAMOTRIGINE [Suspect]
  3. LYRICA [Concomitant]
  4. L-THYROXIN [Concomitant]

REACTIONS (1)
  - Vasculitis [Unknown]
